FAERS Safety Report 20857871 (Version 1)
Quarter: 2022Q2

REPORT INFORMATION
  Report Type: Spontaneous
  Country: GB (occurrence: GB)
  Receive Date: 20220521
  Receipt Date: 20220521
  Transmission Date: 20220721
  Serious: Yes (Other)
  Sender: FDA-Public Use
  Company Number: GB-CELLTRION INC.-2022GB006917

PATIENT

DRUGS (1)
  1. INFLIXIMAB [Suspect]
     Active Substance: INFLIXIMAB
     Dosage: 280 MG
     Dates: start: 20160701

REACTIONS (3)
  - Herpes zoster [Recovered/Resolved]
  - Off label use [Unknown]
  - Intentional product use issue [Unknown]
